FAERS Safety Report 20968489 (Version 1)
Quarter: 2022Q2

REPORT INFORMATION
  Report Type: Spontaneous
  Country: CN (occurrence: CN)
  Receive Date: 20220616
  Receipt Date: 20220616
  Transmission Date: 20220721
  Serious: Yes (Hospitalization, Other)
  Sender: FDA-Public Use
  Company Number: CN-PFIZER INC-202200821389

PATIENT
  Age: 50 Year
  Sex: Male

DRUGS (2)
  1. DOCETAXEL [Suspect]
     Active Substance: DOCETAXEL
     Indication: Metastasis
     Dosage: UNK, CYCLIC
     Dates: start: 20110616
  2. CARBOPLATIN [Suspect]
     Active Substance: CARBOPLATIN
     Indication: Metastasis
     Dosage: UNK, CYCLIC (TWO COURSES)
     Dates: start: 20110616

REACTIONS (2)
  - Drug ineffective [Unknown]
  - Pericardial effusion [Unknown]
